FAERS Safety Report 4337422-3 (Version None)
Quarter: 2004Q1

REPORT INFORMATION
  Report Type: 
  Country: None (occurrence: None)
  Receive Date: 20040329
  Receipt Date: 20040120
  Transmission Date: 20041129
  Serious: No
  Sender: FDA-Public Use
  Company Number: USA040157086

PATIENT
  Age: 33 Year
  Sex: Female

DRUGS (4)
  1. STRATTERA [Suspect]
     Dates: start: 20031201
  2. BACLOFEN [Concomitant]
  3. ZOLOF (SERTRALINE HYDROCHLORIDE) [Concomitant]
  4. NEURONTIN [Concomitant]

REACTIONS (1)
  - BLEPHAROSPASM [None]
